FAERS Safety Report 8851755 (Version 2)
Quarter: 2013Q2

REPORT INFORMATION
  Report Type: Spontaneous
  Country: US (occurrence: None)
  Receive Date: 20120426
  Receipt Date: 20120703
  Transmission Date: 20140414
  Serious: Yes (Other)
  Sender: FDA-Public Use
  Company Number: PHEH2012US001241

PATIENT
  Age: 67 Year
  Sex: Female
  Weight: 79.4 kg

DRUGS (5)
  1. GILENYA [Suspect]
     Indication: RELAPSING-REMITTING MULTIPLE SCLEROSIS
     Route: 048
     Dates: start: 20111019, end: 20111208
  2. AMITRIPTYLINE (AMITRIPTYLINE) [Concomitant]
  3. LISINOPRIL (LISINOPRIL) [Concomitant]
  4. CALCIUM (CALCIUM) [Concomitant]
  5. MULTIVITAMIN (VITAMINS NOS) [Concomitant]

REACTIONS (12)
  - Fungal infection [None]
  - Immune system disorder [None]
  - White blood cell count decreased [None]
  - Oral pain [None]
  - Discomfort [None]
  - Infection [None]
  - Hepatitis [None]
  - Lymphopenia [None]
  - Immunosuppression [None]
  - Drug intolerance [None]
  - Alanine aminotransferase increased [None]
  - CD4 lymphocytes decreased [None]
